FAERS Safety Report 25688721 (Version 2)
Quarter: 2025Q4

REPORT INFORMATION
  Report Type: Spontaneous
  Country: US (occurrence: US)
  Receive Date: 20250818
  Receipt Date: 20251015
  Transmission Date: 20260119
  Serious: No
  Sender: CALLIDITAS THERAPEUTICS AB
  Company Number: US-Calliditas-2025CAL02369

PATIENT
  Age: 78 Year
  Sex: Male

DRUGS (12)
  1. TARPEYO [Suspect]
     Active Substance: BUDESONIDE
     Indication: IgA nephropathy
     Dosage: 16MG (4MG CAPSULES) ONCE DAILY
     Route: 048
     Dates: start: 20250322
  2. ALLOPURINOL [Concomitant]
     Active Substance: ALLOPURINOL
  3. FISH OIL [Concomitant]
     Active Substance: FISH OIL
     Route: 048
     Dates: start: 20250322
  4. IRBESARTAN [Concomitant]
     Active Substance: IRBESARTAN
  5. LEVOTHYROXINE [Concomitant]
     Active Substance: LEVOTHYROXINE
  6. METFORMIN [Concomitant]
     Active Substance: METFORMIN HYDROCHLORIDE
  7. ATORVASTATIN [Concomitant]
     Active Substance: ATORVASTATIN
  8. MAGNESIUM OXIDE [Concomitant]
     Active Substance: MAGNESIUM OXIDE
  9. VITAMINS [Concomitant]
     Active Substance: VITAMINS
  10. ASCORBIC ACID [Concomitant]
     Active Substance: ASCORBIC ACID
  11. DUTASTERIDE [Concomitant]
     Active Substance: DUTASTERIDE
  12. FLOMAX [Concomitant]
     Active Substance: TAMSULOSIN HYDROCHLORIDE

REACTIONS (1)
  - Alport^s syndrome [Unknown]
